FAERS Safety Report 5176904-1 (Version None)
Quarter: 2006Q4

REPORT INFORMATION
  Report Type: 
  Country: None (occurrence: None)
  Receive Date: 20061218
  Receipt Date: 20061027
  Transmission Date: 20070319
  Serious: No
  Sender: FDA-Public Use
  Company Number: PHEH2006US13641

PATIENT
  Age: 47 Year
  Sex: Female
  Weight: 153 kg

DRUGS (7)
  1. MIOCHOL-E [Suspect]
     Indication: CATARACT OPERATION
     Dosage: UNK, ONCE/SINGLE
     Dates: start: 20061027, end: 20061027
  2. HEALON [Concomitant]
     Dosage: 0.55 ML, ONCE/SINGLE
  3. CYCLOGYL [Concomitant]
     Dosage: 2%, Q 5 MINUTES TIMES 3
  4. VOLTAREN [Concomitant]
     Dosage: 0.1%, Q 5 MINUTES X 3
  5. VIGAMOX [Concomitant]
     Dosage: 0.5 %, ONCE/SINGLE
  6. ALCAINE [Concomitant]
     Dosage: 0.5 %, ONCE/SINGLE
  7. IOPIDINE [Concomitant]
     Dosage: 1 %, ONCE/SINGLE

REACTIONS (2)
  - CORNEAL OPACITY [None]
  - MEDICATION ERROR [None]
